FAERS Safety Report 8778243 (Version 3)
Quarter: 2013Q2

REPORT INFORMATION
  Report Type: Report from Study
  Country: JP (occurrence: JP)
  Receive Date: 20120911
  Receipt Date: 20130522
  Transmission Date: 20140414
  Serious: Yes (Hospitalization)
  Sender: FDA-Public Use
  Company Number: JP-009507513-1209JPN000043

PATIENT
  Age: 61 Year
  Sex: Female
  Weight: 48 kg

DRUGS (11)
  1. PEGINTRON [Suspect]
     Indication: CHRONIC HEPATITIS C
     Dosage: 1.5 MICROGRAM PER KILOGRAM, QW
     Route: 058
     Dates: start: 20120516, end: 20120905
  2. REBETOL [Suspect]
     Indication: CHRONIC HEPATITIS C
     Dosage: 400 MG, QD
     Route: 048
     Dates: start: 20120516, end: 20120703
  3. REBETOL [Suspect]
     Dosage: 200 MG, QD
     Route: 048
     Dates: start: 20120704, end: 20120821
  4. TELAVIC [Suspect]
     Indication: CHRONIC HEPATITIS C
     Dosage: 1500 MG, QD
     Route: 048
     Dates: start: 20120516, end: 20120629
  5. TELAVIC [Suspect]
     Dosage: 1500 MG, QD
     Route: 048
     Dates: start: 20120703, end: 20120807
  6. VOLTAREN [Concomitant]
     Indication: PYREXIA
     Dosage: 25 MG, QD, AS NEEDED
     Route: 054
     Dates: start: 20120516
  7. PURSENNID (SENNOSIDES) [Concomitant]
     Indication: CONSTIPATION
     Dosage: 2T/DAY AS NEEDED
     Route: 048
     Dates: start: 20120516
  8. LOCOID [Concomitant]
     Dosage: UNK, PRN
     Route: 061
     Dates: start: 20120629
  9. MYSER (DIFLUPREDNATE) [Concomitant]
     Dosage: UNK, PRN
     Route: 061
     Dates: start: 20120629
  10. LENDORMIN [Concomitant]
     Indication: INSOMNIA
     Dosage: 0.25MG/DAY AS NEEDED FORMULATION: POR
     Route: 048
     Dates: start: 20120706
  11. LASIX (FUROSEMIDE SODIUM) [Concomitant]
     Indication: OEDEMA
     Dosage: 40 MG, QD
     Route: 048
     Dates: start: 20120822, end: 20120918

REACTIONS (1)
  - Drug eruption [Recovered/Resolved]
